FAERS Safety Report 20225176 (Version 2)
Quarter: 2021Q4

REPORT INFORMATION
  Report Type: Spontaneous
  Country: US (occurrence: US)
  Receive Date: 20211223
  Receipt Date: 20211228
  Transmission Date: 20220303
  Serious: Yes (Other)
  Sender: FDA-Public Use
  Company Number: US-SA-SAC20211110000803

PATIENT
  Age: 59 Year
  Sex: Male

DRUGS (2)
  1. DUPIXENT [Suspect]
     Active Substance: DUPILUMAB
     Indication: Asthma
     Dosage: 600 MG, 1X
     Route: 058
  2. DUPIXENT [Suspect]
     Active Substance: DUPILUMAB
     Dosage: 300 MG, QOW
     Route: 058
     Dates: end: 2021

REACTIONS (15)
  - Skin cancer [Not Recovered/Not Resolved]
  - Anaphylactic reaction [Unknown]
  - Eye pain [Recovered/Resolved]
  - Nausea [Recovered/Resolved]
  - Dyspnoea [Recovered/Resolved]
  - Cough [Not Recovered/Not Resolved]
  - Vision blurred [Recovered/Resolved]
  - Cough [Unknown]
  - Needle issue [Unknown]
  - Headache [Unknown]
  - Shoulder operation [Recovering/Resolving]
  - Eye pruritus [Recovered/Resolved]
  - Drug ineffective [Recovered/Resolved]
  - Product use issue [Unknown]
  - Therapeutic response shortened [Unknown]

NARRATIVE: CASE EVENT DATE: 20210101
